FAERS Safety Report 4438505-X (Version None)
Quarter: 2004Q3

REPORT INFORMATION
  Report Type: 
  Country: None (occurrence: None)
  Receive Date: 20040831
  Receipt Date: 20040825
  Transmission Date: 20050211
  Serious: Yes (Life-Threatening)
  Sender: FDA-Public Use
  Company Number: IT-MERCK-0408ITA00018

PATIENT
  Age: 33 Year
  Sex: Male

DRUGS (2)
  1. INSULIN [Concomitant]
     Route: 065
  2. SIMVASTATIN [Suspect]
     Indication: HYPERCHOLESTEROLAEMIA
     Route: 048
     Dates: start: 20040713, end: 20040728

REACTIONS (2)
  - ALANINE AMINOTRANSFERASE INCREASED [None]
  - FIBROMYALGIA [None]
